FAERS Safety Report 4609374-X (Version None)
Quarter: 2005Q1

REPORT INFORMATION
  Report Type: 
  Country: None (occurrence: None)
  Receive Date: 20050314
  Receipt Date: 20050307
  Transmission Date: 20050727
  Serious: Yes (Death, Hospitalization)
  Sender: FDA-Public Use
  Company Number: 2005-00048

PATIENT
  Age: 78 Year
  Sex: Male
  Weight: 65 kg

DRUGS (5)
  1. VELCADE [Suspect]
     Indication: MULTIPLE MYELOMA
     Dosage: 2.20 MG, INTRAVENOUS
     Route: 042
     Dates: start: 20041216, end: 20041227
  2. DANCOR (NICORANDIL) [Concomitant]
  3. NORVASC [Concomitant]
  4. MARCUMAR [Concomitant]
  5. ZOLADEX [Concomitant]

REACTIONS (13)
  - ANURIA [None]
  - CIRCULATORY COLLAPSE [None]
  - ENTEROCOCCAL INFECTION [None]
  - METABOLIC ACIDOSIS [None]
  - METASTASES TO BONE [None]
  - NEPHROPATHY [None]
  - NEPHROSCLEROSIS [None]
  - PNEUMONIA [None]
  - PSEUDOMONAS INFECTION [None]
  - RENAL FAILURE ACUTE [None]
  - RESPIRATORY DISTRESS [None]
  - RESPIRATORY FAILURE [None]
  - SEPSIS [None]
